FAERS Safety Report 17080190 (Version 2)
Quarter: 2019Q4

REPORT INFORMATION
  Report Type: Spontaneous
  Country: ES (occurrence: ES)
  Receive Date: 20191127
  Receipt Date: 20191204
  Transmission Date: 20200122
  Serious: Yes (Hospitalization)
  Sender: FDA-Public Use
  Company Number: ES-TEVA-2019-ES-1141558

PATIENT
  Age: 52 Year
  Sex: Male

DRUGS (6)
  1. QUETIAPINA (1136A) [Interacting]
     Active Substance: QUETIAPINE
     Route: 065
     Dates: start: 201703, end: 20180715
  2. IMIGRAN [Interacting]
     Active Substance: SUMATRIPTAN SUCCINATE
     Dates: start: 201703, end: 20180702
  3. TOPAMAX [Concomitant]
     Active Substance: TOPIRAMATE
  4. VENLAFAXINA (2664A) [Suspect]
     Active Substance: VENLAFAXINE HYDROCHLORIDE
     Route: 065
     Dates: start: 201703, end: 20180702
  5. AMITRIPTILINA (395A) [Interacting]
     Active Substance: AMITRIPTYLINE
     Dates: start: 201703, end: 20180702
  6. LORMETAZEPAM (88A) [Concomitant]
     Active Substance: LORMETAZEPAM
     Route: 065

REACTIONS (4)
  - Hyperthermia [Unknown]
  - Rhabdomyolysis [Recovered/Resolved]
  - Drug interaction [Unknown]
  - Serotonin syndrome [Recovered/Resolved]

NARRATIVE: CASE EVENT DATE: 20180629
